FAERS Safety Report 8301566-1 (Version None)
Quarter: 2012Q2

REPORT INFORMATION
  Report Type: 
  Country: None (occurrence: None)
  Receive Date: 20120420
  Receipt Date: 20120411
  Transmission Date: 20120825
  Serious: Yes (Hospitalization)
  Sender: FDA-Public Use
  Company Number: CA-JNJFOC-20120315230

PATIENT
  Sex: Male
  Weight: 72 kg

DRUGS (12)
  1. IRON [Concomitant]
     Route: 048
  2. REMICADE [Suspect]
     Route: 042
     Dates: start: 20120124
  3. AZATHIOPRINE [Concomitant]
     Route: 048
  4. CITALOPRAM HYDROBROMIDE [Concomitant]
     Route: 065
  5. REMICADE [Suspect]
     Indication: CROHN'S DISEASE
     Dosage: ONCE EVERY 8 WEEKS THERE AFTER
     Route: 042
     Dates: start: 20110125
  6. DIGOXIN [Concomitant]
     Dosage: TRADE NAME: TOLOXIN
     Route: 065
  7. PERINDOPRIL ERBUMINE [Concomitant]
     Dosage: 1 IN NOON
     Route: 065
  8. PMS-CARVEDILOL [Concomitant]
     Route: 065
  9. OMEPRAZOLE [Concomitant]
     Route: 048
  10. VITAMIN D [Concomitant]
     Route: 065
  11. HEART MEDICATION (NOS) [Concomitant]
     Route: 065
  12. VITAMIN B-12 [Concomitant]
     Route: 058

REACTIONS (2)
  - POST PROCEDURAL INFECTION [None]
  - INTESTINAL RESECTION [None]
